FAERS Safety Report 4327922-4 (Version None)
Quarter: 2004Q1

REPORT INFORMATION
  Report Type: 
  Country: None (occurrence: None)
  Receive Date: 20040325
  Receipt Date: 20040312
  Transmission Date: 20041129
  Serious: Yes (Hospitalization, Disabling)
  Sender: FDA-Public Use
  Company Number: 2004SE00812

PATIENT
  Age: 72 Year
  Sex: Male
  Weight: 78 kg

DRUGS (8)
  1. MARCAINE [Suspect]
     Indication: ANAESTHESIA
     Dosage: 15 MG ONCE IT
     Route: 038
     Dates: start: 20031217, end: 20031217
  2. NAROPIN [Suspect]
     Indication: ANAESTHESIA
     Dosage: 75 MG ONCE ED
     Route: 008
     Dates: start: 20031217, end: 20031217
  3. METFORMIN HCL [Concomitant]
  4. DIAMICRON [Concomitant]
  5. GLUCOBAY [Concomitant]
  6. ZARATOR [Concomitant]
  7. LIPANTHYL [Concomitant]
  8. OMNIC [Concomitant]

REACTIONS (3)
  - ANAESTHETIC COMPLICATION NEUROLOGICAL [None]
  - MYELOPATHY [None]
  - PARAPARESIS [None]
